FAERS Safety Report 9169250 (Version 1)
Quarter: 2013Q1

REPORT INFORMATION
  Report Type: Report from Study
  Country: US (occurrence: US)
  Receive Date: 20130318
  Receipt Date: 20130318
  Transmission Date: 20140127
  Serious: Yes (Hospitalization)
  Sender: FDA-Public Use
  Company Number: US-EISAI INC-E7389-03630-CLI-US

PATIENT
  Age: 81 Year
  Sex: Female
  Weight: 60 kg

DRUGS (14)
  1. HALAVEN [Suspect]
     Indication: BREAST CANCER
     Route: 041
     Dates: start: 20121211
  2. ASPIRIN [Concomitant]
     Dates: start: 20061204
  3. TUMS [Concomitant]
     Dates: start: 20061204
  4. PRAVACHOL [Concomitant]
     Dates: start: 20061204
  5. MULTIVITAMINS [Concomitant]
     Dates: start: 20061204
  6. VITAMIN D [Concomitant]
  7. IBUPROFEN [Concomitant]
     Dates: start: 20061204
  8. COLACE [Concomitant]
     Dates: start: 20070914
  9. PEPCID [Concomitant]
     Dates: start: 20070914
  10. CLARITIN [Concomitant]
     Dates: start: 20090309
  11. GENTEAL [Concomitant]
     Dates: start: 20100322
  12. TRIPROLIDINE [Concomitant]
     Dates: start: 20110411
  13. PROCHLORPERAZINE [Concomitant]
     Dates: start: 20121211
  14. ATIVAN [Concomitant]
     Dates: start: 20121211

REACTIONS (1)
  - Syncope [Recovered/Resolved]
